FAERS Safety Report 21467937 (Version 4)
Quarter: 2023Q1

REPORT INFORMATION
  Report Type: Report from Study
  Country: CN (occurrence: CN)
  Receive Date: 20221017
  Receipt Date: 20230209
  Transmission Date: 20230418
  Serious: Yes (Hospitalization)
  Sender: FDA-Public Use
  Company Number: CN-PFIZER INC-PV202200081080

PATIENT
  Age: 51 Year
  Sex: Female
  Weight: 52 kg

DRUGS (11)
  1. PALBOCICLIB [Suspect]
     Active Substance: PALBOCICLIB
     Indication: Breast cancer metastatic
     Dosage: 125 MG, 1X/DAY (1 IN 1 D)
     Route: 048
     Dates: start: 20211216
  2. INAVOLISIB [Suspect]
     Active Substance: INAVOLISIB
     Indication: Breast cancer metastatic
     Dosage: 9 MG, 1X/DAY (1 IN 1 D)
     Route: 048
     Dates: start: 20211216
  3. FULVESTRANT [Suspect]
     Active Substance: FULVESTRANT
     Indication: Breast cancer metastatic
     Dosage: 500 MG, MONTHLY (1 IN 4 WK)
     Route: 030
     Dates: start: 20211216
  4. LEUCOGEN [Concomitant]
     Active Substance: LEUCOGEN
     Dosage: 20 MG,3 IN 1 D
     Route: 048
     Dates: start: 20211230
  5. POTASSIUM CHLORIDE [Concomitant]
     Active Substance: POTASSIUM CHLORIDE
     Indication: Hypokalaemia
     Dosage: 0.5 G,2 IN 1 D
     Route: 048
     Dates: start: 20211230
  6. URSODIOL [Concomitant]
     Active Substance: URSODIOL
     Indication: Blood bilirubin increased
     Dosage: 0.25 MG,2 IN 1 D
     Route: 048
     Dates: start: 20211223
  7. BICYCLOL [Concomitant]
     Active Substance: BICYCLOL
     Dosage: 25 MG,2 IN 1 D
     Route: 048
     Dates: start: 20211223
  8. METFORMIN HYDROCHLORIDE [Concomitant]
     Active Substance: METFORMIN HYDROCHLORIDE
     Indication: Hyperglycaemia
     Dosage: 0.5 G,3 IN 1 D
     Route: 048
     Dates: start: 20220902
  9. METHOXYPHENAMINE [Concomitant]
     Active Substance: METHOXYPHENAMINE
     Indication: Cough
     Dosage: 25 MG,3 IN 1 D
     Route: 048
     Dates: start: 20220920
  10. CODEINE PHOSPHATE [Concomitant]
     Active Substance: CODEINE PHOSPHATE
     Dosage: UNK
  11. PLATYCODON GRANDIFLORUS WHOLE [Concomitant]
     Active Substance: PLATYCODON GRANDIFLORUS WHOLE
     Dosage: UNK

REACTIONS (2)
  - Dyspnoea [Recovering/Resolving]
  - Cough [Recovering/Resolving]

NARRATIVE: CASE EVENT DATE: 20221004
